FAERS Safety Report 9323919 (Version 1)
Quarter: 2013Q2

REPORT INFORMATION
  Report Type: Spontaneous
  Country: FR (occurrence: FR)
  Receive Date: 20130603
  Receipt Date: 20130603
  Transmission Date: 20140414
  Serious: Yes (Other)
  Sender: FDA-Public Use
  Company Number: FR-BRISTOL-MYERS SQUIBB COMPANY-18959072

PATIENT
  Age: 39 Year
  Sex: Male

DRUGS (1)
  1. IRBESARTAN [Suspect]
     Indication: HYPERTENSION
     Route: 048
     Dates: start: 201209, end: 201305

REACTIONS (2)
  - Blood pressure increased [Unknown]
  - Eye disorder [Unknown]
